FAERS Safety Report 16981591 (Version 8)
Quarter: 2020Q1

REPORT INFORMATION
  Report Type: Spontaneous
  Country: CA (occurrence: CA)
  Receive Date: 20191101
  Receipt Date: 20200319
  Transmission Date: 20200409
  Serious: Yes (Hospitalization, Other)
  Sender: FDA-Public Use
  Company Number: CA-CELLTRION INC.-2019CA023362

PATIENT

DRUGS (18)
  1. INFLECTRA [Suspect]
     Active Substance: INFLIXIMAB-DYYB
     Dosage: 800 MG, AT 0, 2, 6, THEN EVERY 4 WEEKS
     Route: 042
     Dates: start: 20200114
  2. AZATHIOPRINE. [Concomitant]
     Active Substance: AZATHIOPRINE
     Dosage: 150 MG, 1X/DAY
     Route: 048
  3. INFLECTRA [Suspect]
     Active Substance: INFLIXIMAB-DYYB
     Dosage: 800 MG, AT 0, 2, 6, THEN EVERY 4 WEEKS
     Route: 042
     Dates: start: 20191219
  4. PREDNISONE. [Concomitant]
     Active Substance: PREDNISONE
     Dosage: 1/2 TAB, UNK
     Route: 065
     Dates: start: 201910
  5. INFLECTRA [Suspect]
     Active Substance: INFLIXIMAB-DYYB
     Indication: COLITIS ULCERATIVE
     Dosage: 800 MG, AT 0, 2, 6 WEEKS, THEN EVERY 4 WEEKS
     Route: 042
     Dates: start: 20190711
  6. INFLECTRA [Suspect]
     Active Substance: INFLIXIMAB-DYYB
     Dosage: 800 MG, AT 0, 2, 6, THEN EVERY 4 WEEKS
     Route: 042
     Dates: start: 20190725
  7. INFLECTRA [Suspect]
     Active Substance: INFLIXIMAB-DYYB
     Dosage: 800 MG, AT 0, 2, 6, THEN EVERY 4 WEEKS
     Route: 042
     Dates: start: 20200309
  8. DIPHENHYDRAMINE. [Concomitant]
     Active Substance: DIPHENHYDRAMINE
     Indication: PREMEDICATION
     Dosage: 50 MG, UNK
     Route: 042
     Dates: start: 20200210, end: 20200210
  9. DIPHENHYDRAMINE. [Concomitant]
     Active Substance: DIPHENHYDRAMINE
     Dosage: 50 MG, UNK
     Route: 042
     Dates: start: 20200309, end: 20200309
  10. INFLECTRA [Suspect]
     Active Substance: INFLIXIMAB-DYYB
     Dosage: 800 MG, AT 0, 2, 6, THEN EVERY 4 WEEKS
     Route: 042
     Dates: start: 20191021
  11. ASACOL [Concomitant]
     Active Substance: MESALAMINE
     Dosage: 4.8 G, UNK
     Route: 048
  12. HYDROCORTISONE. [Concomitant]
     Active Substance: HYDROCORTISONE
     Dosage: 100 MG, UNK
     Route: 042
     Dates: start: 20200309, end: 20200309
  13. INFLECTRA [Suspect]
     Active Substance: INFLIXIMAB-DYYB
     Dosage: 800 MG, AT 0, 2, 6, THEN EVERY 4 WEEKS
     Route: 042
     Dates: start: 20190823
  14. INFLECTRA [Suspect]
     Active Substance: INFLIXIMAB-DYYB
     Dosage: 800 MG, AT 0, 2, 6, THEN EVERY 4 WEEKS
     Route: 042
     Dates: start: 20190923
  15. INFLECTRA [Suspect]
     Active Substance: INFLIXIMAB-DYYB
     Dosage: 800 MG, AT 0, 2, 6, THEN EVERY 4 WEEKS
     Route: 042
     Dates: start: 20191118
  16. INFLECTRA [Suspect]
     Active Substance: INFLIXIMAB-DYYB
     Dosage: 800 MG, AT 0, 2, 6, THEN EVERY 4 WEEKS
     Route: 042
     Dates: start: 20191219
  17. INFLECTRA [Suspect]
     Active Substance: INFLIXIMAB-DYYB
     Dosage: 800 MG, AT 0, 2, 6, THEN EVERY 4 WEEKS
     Route: 042
     Dates: start: 20200210
  18. HYDROCORTISONE. [Concomitant]
     Active Substance: HYDROCORTISONE
     Indication: PREMEDICATION
     Dosage: 100 MG, UNK
     Route: 042
     Dates: start: 20200210, end: 20200210

REACTIONS (9)
  - Heart rate decreased [Unknown]
  - Off label use [Unknown]
  - Fall [Unknown]
  - Condition aggravated [Unknown]
  - Drug ineffective [Unknown]
  - Malaise [Not Recovered/Not Resolved]
  - Blood pressure fluctuation [Unknown]
  - Heart rate irregular [Unknown]
  - Weight increased [Unknown]

NARRATIVE: CASE EVENT DATE: 2019
